FAERS Safety Report 11492604 (Version 1)
Quarter: 2015Q3

REPORT INFORMATION
  Report Type: Spontaneous
  Country: US (occurrence: US)
  Receive Date: 20150910
  Receipt Date: 20150910
  Transmission Date: 20151125
  Serious: Yes (Hospitalization, Other)
  Sender: FDA-Public Use
  Company Number: US-AMGEN-USASP2015092326

PATIENT
  Age: 51 Year
  Sex: Male
  Weight: 142.86 kg

DRUGS (1)
  1. ENBREL [Suspect]
     Active Substance: ETANERCEPT
     Indication: PRODUCT USED FOR UNKNOWN INDICATION
     Dosage: 50 MG, QWK
     Route: 058
     Dates: start: 2012

REACTIONS (9)
  - Joint warmth [Unknown]
  - Drug ineffective [Not Recovered/Not Resolved]
  - Injection site reaction [Not Recovered/Not Resolved]
  - Diverticulitis [Recovered/Resolved]
  - Chills [Unknown]
  - Nephrolithiasis [Recovered/Resolved]
  - Cholelithiasis [Recovered/Resolved]
  - Injection site swelling [Not Recovered/Not Resolved]
  - Tremor [Unknown]

NARRATIVE: CASE EVENT DATE: 2012
